FAERS Safety Report 9938197 (Version 3)
Quarter: 2015Q4

REPORT INFORMATION
  Report Type: Report from Study
  Country: US (occurrence: US)
  Receive Date: 20140303
  Receipt Date: 20151113
  Transmission Date: 20160305
  Serious: Yes (Other)
  Sender: FDA-Public Use
  Company Number: US-ROCHE-1329746

PATIENT
  Age: 41 Year
  Sex: Male

DRUGS (15)
  1. NOVOLIN [Concomitant]
     Active Substance: INSULIN HUMAN
  2. TOBRAMYCIN. [Concomitant]
     Active Substance: TOBRAMYCIN
     Dosage: OS
     Route: 065
  3. AMLODIPINE [Concomitant]
     Active Substance: AMLODIPINE BESYLATE
  4. ATROPINE. [Concomitant]
     Active Substance: ATROPINE
     Dosage: OD
     Route: 065
  5. LUCENTIS [Suspect]
     Active Substance: RANIBIZUMAB
     Indication: DIABETIC RETINOPATHY
     Dosage: FOR 3 MONTHS THEN QUARTERLY
     Route: 050
  6. SUCRALFATE. [Concomitant]
     Active Substance: SUCRALFATE
  7. ZYMAR [Concomitant]
     Active Substance: GATIFLOXACIN
     Dosage: 3 DAYS PRIOR TO NEXT VISIT OS
     Route: 065
  8. CLONIDINE. [Concomitant]
     Active Substance: CLONIDINE
  9. NIFEDIPINE. [Concomitant]
     Active Substance: NIFEDIPINE
  10. TRAVATAN [Concomitant]
     Active Substance: TRAVOPROST
     Dosage: QHS OD
     Route: 065
  11. LUCENTIS [Suspect]
     Active Substance: RANIBIZUMAB
     Route: 050
     Dates: start: 20110928
  12. LANTUS [Concomitant]
     Active Substance: INSULIN GLARGINE
  13. LUCENTIS [Suspect]
     Active Substance: RANIBIZUMAB
     Indication: DIABETIC RETINAL OEDEMA
     Dosage: FOR 3 MONTHS THEN QUARTERLY
     Route: 050
  14. NEPHRO-VITE [Concomitant]
  15. TIMOLOL. [Concomitant]
     Active Substance: TIMOLOL
     Dosage: OD
     Route: 065

REACTIONS (20)
  - Blindness [Unknown]
  - Eye pain [Unknown]
  - Photopsia [Unknown]
  - Iris neovascularisation [Unknown]
  - Atrophy [Unknown]
  - Dialysis [Unknown]
  - Vitreous floaters [Unknown]
  - Retinal oedema [Unknown]
  - Macular degeneration [Unknown]
  - Vision blurred [Unknown]
  - Visual acuity tests abnormal [Unknown]
  - Visual acuity reduced [Unknown]
  - Cataract nuclear [Unknown]
  - Retinal exudates [Unknown]
  - Vitreous adhesions [Unknown]
  - Glaucoma [Unknown]
  - Metamorphopsia [Unknown]
  - Macular degeneration [Unknown]
  - Retinal laser coagulation [Unknown]
  - Off label use [Unknown]

NARRATIVE: CASE EVENT DATE: 20110928
